FAERS Safety Report 24565410 (Version 7)
Quarter: 2025Q4

REPORT INFORMATION
  Report Type: Report from Study
  Country: EU (occurrence: EU)
  Receive Date: 20241030
  Receipt Date: 20251002
  Transmission Date: 20260118
  Serious: Yes (Hospitalization, Other)
  Sender: TAKEDA
  Company Number: EU-TAKEDA-2024TUS040512

PATIENT
  Age: 26 Year
  Sex: Male

DRUGS (11)
  1. RURIOCTOCOG ALFA PEGOL [Suspect]
     Active Substance: RURIOCTOCOG ALFA PEGOL
     Indication: Factor VIII deficiency
     Dosage: 17 INTERNATIONAL UNIT/KILOGRAM,3/WEEK
     Dates: start: 20230523
  2. RURIOCTOCOG ALFA PEGOL [Suspect]
     Active Substance: RURIOCTOCOG ALFA PEGOL
  3. RURIOCTOCOG ALFA PEGOL [Suspect]
     Active Substance: RURIOCTOCOG ALFA PEGOL
  4. SEMAGLUTIDE [Concomitant]
     Active Substance: SEMAGLUTIDE
     Indication: Diabetes mellitus
     Dosage: 0.5 MILLIGRAM, 1/WEEK
     Dates: start: 20230412, end: 20230503
  5. SEMAGLUTIDE [Concomitant]
     Active Substance: SEMAGLUTIDE
     Dosage: 1 MILLIGRAM, 1/WEEK
     Dates: start: 20230510, end: 20230524
  6. SEMAGLUTIDE [Concomitant]
     Active Substance: SEMAGLUTIDE
     Dosage: 2 MILLIGRAM, 1/WEEK
     Dates: start: 20230531, end: 20231229
  7. ETORICOXIB [Concomitant]
     Active Substance: ETORICOXIB
     Indication: Arthralgia
     Dosage: 60 MILLIGRAM, QD
     Dates: start: 20240112
  8. ACETAMINOPHEN\TRAMADOL [Concomitant]
     Active Substance: ACETAMINOPHEN\TRAMADOL
     Indication: Arthralgia
     Dosage: 37.50 MILLIGRAM
  9. IBUPROFEN [Concomitant]
     Active Substance: IBUPROFEN
     Indication: Arthralgia
     Dosage: 400 MILLIGRAM, BID
     Dates: start: 20230523, end: 20230526
  10. IBUPROFEN [Concomitant]
     Active Substance: IBUPROFEN
     Dosage: 50 MILLIGRAM
     Route: 061
     Dates: start: 20230523, end: 20230526
  11. TRIAMCINOLONE ACETONIDE [Concomitant]
     Active Substance: TRIAMCINOLONE ACETONIDE
     Indication: Arthralgia
     Dosage: 40 MILLIGRAM, SINGLE
     Dates: start: 20230707, end: 20230707

REACTIONS (2)
  - Deep vein thrombosis [Recovered/Resolved]
  - Arthropathy [Recovering/Resolving]

NARRATIVE: CASE EVENT DATE: 20230523
